FAERS Safety Report 16536681 (Version 3)
Quarter: 2019Q3

REPORT INFORMATION
  Report Type: Spontaneous
  Country: IE (occurrence: IE)
  Receive Date: 20190706
  Receipt Date: 20190821
  Transmission Date: 20191004
  Serious: Yes (Life-Threatening, Hospitalization, Other)
  Sender: FDA-Public Use
  Company Number: IE-ACCORD-136537

PATIENT
  Age: 56 Year
  Sex: Female

DRUGS (8)
  1. LANSOPRAZOLE. [Concomitant]
     Active Substance: LANSOPRAZOLE
     Dosage: OD
     Dates: start: 2015
  2. LEVOTHYROXINE. [Concomitant]
     Active Substance: LEVOTHYROXINE
     Indication: HYPOTHYROIDISM
     Dosage: 50 MCG OD
  3. SALMETEROL [Concomitant]
     Active Substance: SALMETEROL
     Dosage: 50 MCG B.D. (TWICE DAILY)
  4. CLOZAPINE. [Suspect]
     Active Substance: CLOZAPINE
     Indication: SCHIZOAFFECTIVE DISORDER
     Dosage: 50 MG MANE AND 125 MG NOCTE, REDUCED, 25 MG B.D,
     Dates: start: 2015
  5. AMOXICILLIN/CLAVULANIC ACID [Suspect]
     Active Substance: AMOXICILLIN\CLAVULANIC ACID
     Indication: LOWER RESPIRATORY TRACT INFECTION
     Dates: start: 201511, end: 2015
  6. VALPROIC ACID. [Concomitant]
     Active Substance: VALPROIC ACID
     Indication: SCHIZOAFFECTIVE DISORDER
     Dosage: CHRONO 1200 MG NOCTE
     Dates: start: 2015
  7. TIOTROPIUM/TIOTROPIUM BROMIDE [Concomitant]
     Dosage: 18 MCG OD
  8. FLUPHENAZINE [Concomitant]
     Active Substance: FLUPHENAZINE

REACTIONS (7)
  - Tubulointerstitial nephritis [Recovering/Resolving]
  - Tachycardia [Recovering/Resolving]
  - Salivary hypersecretion [Unknown]
  - Chronic kidney disease [Recovering/Resolving]
  - Renal failure [Recovering/Resolving]
  - Cardiomegaly [Unknown]
  - Sedation complication [Unknown]

NARRATIVE: CASE EVENT DATE: 201511
